FAERS Safety Report 5311093-1 (Version None)
Quarter: 2007Q2

REPORT INFORMATION
  Report Type: 
  Country: None (occurrence: None)
  Receive Date: 20070427
  Receipt Date: 20070427
  Transmission Date: 20071010
  Serious: Yes (Hospitalization)
  Sender: FDA-Public Use
  Company Number: None

PATIENT
  Sex: Female
  Weight: 95 kg

DRUGS (2)
  1. CARBOPLATIN [Suspect]
     Dosage: 700 MG
     Dates: end: 20070418
  2. TAXOL [Suspect]
     Dosage: 350 MG
     Dates: end: 20070418

REACTIONS (4)
  - ANOREXIA [None]
  - ASTHENIA [None]
  - DIARRHOEA [None]
  - VOMITING [None]
